FAERS Safety Report 7541974-X (Version None)
Quarter: 2011Q2

REPORT INFORMATION
  Report Type: 
  Country: None (occurrence: None)
  Receive Date: 20110613
  Receipt Date: 20110601
  Transmission Date: 20111010
  Serious: Yes (Other)
  Sender: FDA-Public Use
  Company Number: US-ALLERGAN-1106563US

PATIENT
  Age: 56 Year
  Sex: Female

DRUGS (1)
  1. RESTASIS [Suspect]
     Indication: SJOGREN'S SYNDROME
     Dosage: UNK
     Dates: start: 20050101

REACTIONS (1)
  - LYMPHOMA CUTIS [None]
